FAERS Safety Report 6328276-4 (Version None)
Quarter: 2009Q3

REPORT INFORMATION
  Report Type: 
  Country: None (occurrence: None)
  Receive Date: 20090825
  Receipt Date: 20090520
  Transmission Date: 20100115
  Serious: No
  Sender: FDA-Public Use
  Company Number: US-ABBOTT-09P-163-0575167-00

PATIENT
  Sex: Female
  Weight: 63.56 kg

DRUGS (9)
  1. SYNTHROID [Suspect]
     Indication: THYROIDECTOMY
     Dates: start: 20090519
  2. SYNTHROID [Suspect]
     Dates: start: 19770101, end: 20090518
  3. ALPRAZOLAM [Concomitant]
     Indication: DRUG USE FOR UNKNOWN INDICATION
  4. CLOZAPINE [Concomitant]
     Indication: DRUG USE FOR UNKNOWN INDICATION
  5. COUMADIN [Concomitant]
     Indication: DRUG USE FOR UNKNOWN INDICATION
     Dosage: 2-4 VARIES
  6. PRIMIDONE [Concomitant]
     Indication: TREMOR
  7. MACROBID [Concomitant]
     Indication: CYSTITIS
  8. SOTALOL HYDROCHLORIDE [Concomitant]
     Indication: DRUG USE FOR UNKNOWN INDICATION
  9. TYLENOL (CAPLET) [Concomitant]
     Indication: DRUG USE FOR UNKNOWN INDICATION

REACTIONS (2)
  - GENERALISED ERYTHEMA [None]
  - PRURITUS [None]
